FAERS Safety Report 7043819-3 (Version None)
Quarter: 2010Q4

REPORT INFORMATION
  Report Type: 
  Country: None (occurrence: None)
  Receive Date: 20101012
  Receipt Date: 20101012
  Transmission Date: 20110411
  Serious: No
  Sender: FDA-Public Use
  Company Number: None

PATIENT
  Age: 49 Year
  Sex: Female
  Weight: 68.0396 kg

DRUGS (1)
  1. SIBUTRAMINE HYDROCHLORIDE MONOHYDRATE [Suspect]
     Indication: INCREASED APPETITE
     Dosage: ONE TABLET EOD PO
     Route: 048

REACTIONS (12)
  - ANGER [None]
  - APHASIA [None]
  - DEAFNESS TRANSITORY [None]
  - HYPERACUSIS [None]
  - HYPOAESTHESIA [None]
  - INNER EAR DISORDER [None]
  - INSOMNIA [None]
  - MENORRHAGIA [None]
  - PARAESTHESIA [None]
  - SUICIDAL IDEATION [None]
  - TINNITUS [None]
  - VERTIGO [None]
